FAERS Safety Report 5313155-1 (Version None)
Quarter: 2007Q2

REPORT INFORMATION
  Report Type: 
  Country: None (occurrence: None)
  Receive Date: 20070430
  Receipt Date: 20070420
  Transmission Date: 20071010
  Serious: Yes (Other)
  Sender: FDA-Public Use
  Company Number: AU-PFIZER INC-2007033241

PATIENT
  Sex: Male

DRUGS (4)
  1. CAMPTOSAR [Suspect]
  2. DEXAMETHASONE 0.5MG TAB [Concomitant]
  3. ATROPINE [Concomitant]
  4. ZOFRAN [Concomitant]

REACTIONS (1)
  - SWOLLEN TONGUE [None]
